FAERS Safety Report 15721226 (Version 1)
Quarter: 2018Q4

REPORT INFORMATION
  Report Type: Spontaneous
  Country: FR (occurrence: FR)
  Receive Date: 20181214
  Receipt Date: 20181214
  Transmission Date: 20190205
  Serious: Yes (Death)
  Sender: FDA-Public Use
  Company Number: FR-TEVA-2018-FR-985858

PATIENT
  Age: 61 Year
  Sex: Male

DRUGS (3)
  1. DOXORUBICINE [Suspect]
     Active Substance: DOXORUBICIN
     Route: 042
     Dates: start: 20070402, end: 20070610
  2. VINCRISTINE [Suspect]
     Active Substance: VINCRISTINE
     Route: 042
     Dates: start: 20070402, end: 20070610
  3. DEXAMETHASONE. [Suspect]
     Active Substance: DEXAMETHASONE
     Dosage: 40 MILLIGRAM DAILY;
     Route: 048
     Dates: start: 20070402, end: 20070610

REACTIONS (2)
  - Sepsis [Fatal]
  - Endocarditis [Fatal]

NARRATIVE: CASE EVENT DATE: 20070612
